FAERS Safety Report 13268249 (Version 1)
Quarter: 2017Q1

REPORT INFORMATION
  Report Type: Spontaneous
  Country: FR (occurrence: FR)
  Receive Date: 20170224
  Receipt Date: 20170224
  Transmission Date: 20170428
  Serious: Yes (Other)
  Sender: FDA-Public Use
  Company Number: FR-PFIZER INC-2017046007

PATIENT
  Age: 77 Year
  Sex: Female

DRUGS (2)
  1. XALATAN [Suspect]
     Active Substance: LATANOPROST
     Dosage: 1 GTT IN EACH EYE EVERY EVENINGS
     Route: 047
  2. XALATAN [Suspect]
     Active Substance: LATANOPROST
     Indication: GLAUCOMA
     Dosage: 1 GTT IN EACH EYE EVERY EVENINGS
     Route: 047
     Dates: start: 201701

REACTIONS (6)
  - Eye pain [Recovered/Resolved]
  - Eyelid skin dryness [Unknown]
  - Lacrimation disorder [Unknown]
  - Cataract [Not Recovered/Not Resolved]
  - Lacrimation increased [Recovered/Resolved]
  - Eye irritation [Recovered/Resolved]

NARRATIVE: CASE EVENT DATE: 201701
